FAERS Safety Report 6664859-X (Version None)
Quarter: 2010Q2

REPORT INFORMATION
  Report Type: 
  Country: None (occurrence: None)
  Receive Date: 20100402
  Receipt Date: 20100324
  Transmission Date: 20101027
  Serious: Yes (Hospitalization)
  Sender: FDA-Public Use
  Company Number: US-BIOGENIDEC-2010BI010285

PATIENT
  Age: 26 Year
  Sex: Female

DRUGS (2)
  1. AVONEX [Suspect]
     Indication: MULTIPLE SCLEROSIS
     Route: 030
     Dates: start: 20000801, end: 20090601
  2. AVONEX [Suspect]
     Route: 030
     Dates: start: 20100308

REACTIONS (3)
  - ABASIA [None]
  - ASTHENIA [None]
  - HYPOAESTHESIA [None]
